FAERS Safety Report 5205866-3 (Version None)
Quarter: 2007Q1

REPORT INFORMATION
  Report Type: 
  Country: None (occurrence: None)
  Receive Date: 20070108
  Receipt Date: 20061211
  Transmission Date: 20070707
  Serious: Yes (Hospitalization)
  Sender: FDA-Public Use
  Company Number: 2006-151814-NL

PATIENT
  Age: 66 Year
  Sex: Female

DRUGS (1)
  1. VASTAT FLAS/ MIRTAZAPINE SOLTAB [Suspect]
     Indication: DEPRESSION
     Dosage: 15 MG ORAL
     Route: 048
     Dates: start: 20060801, end: 20061007

REACTIONS (3)
  - HAEMOLYTIC ANAEMIA [None]
  - LEUKOPENIA [None]
  - THROMBOCYTOPENIA [None]
